FAERS Safety Report 6070176-1 (Version None)
Quarter: 2009Q1

REPORT INFORMATION
  Report Type: 
  Country: None (occurrence: None)
  Receive Date: 20090204
  Receipt Date: 20090127
  Transmission Date: 20090719
  Serious: Yes (Other)
  Sender: FDA-Public Use
  Company Number: US025347

PATIENT
  Age: 65 Year
  Sex: Male
  Weight: 76 kg

DRUGS (6)
  1. ARSENIC TRIOXIDE [Suspect]
     Indication: ACUTE PROMYELOCYTIC LEUKAEMIA
     Dosage: 0.3 MG/KG DAY 1-5 WEEK 1: TWICE/WEEKLY WEEKS 2-4 CYCLICAL INTRAVENOUS
     Route: 042
     Dates: start: 20080218, end: 20081114
  2. MAGNESIUM GLYCEROPHOSPHATE [Concomitant]
  3. SLOW-K [Concomitant]
  4. TRAMADOL HCL [Concomitant]
  5. PARACETAMOL [Concomitant]
  6. ATRA [Concomitant]

REACTIONS (2)
  - DYSPLASIA [None]
  - RED BLOOD CELL ABNORMALITY [None]
